FAERS Safety Report 14193052 (Version 2)
Quarter: 2017Q4

REPORT INFORMATION
  Report Type: Report from Study
  Country: CO (occurrence: CO)
  Receive Date: 20171115
  Receipt Date: 20171201
  Transmission Date: 20180321
  Serious: Yes (Hospitalization, Other)
  Sender: FDA-Public Use
  Company Number: PHHY2017CO168609

PATIENT
  Age: 33 Year
  Sex: Female
  Weight: 31 kg

DRUGS (2)
  1. AMANTADINE. [Concomitant]
     Active Substance: AMANTADINE HYDROCHLORIDE
     Indication: PRODUCT USED FOR UNKNOWN INDICATION
     Route: 065
  2. GILENYA [Suspect]
     Active Substance: FINGOLIMOD HYDROCHLORIDE
     Indication: MULTIPLE SCLEROSIS
     Dosage: 0.5 MG, QD
     Route: 048
     Dates: start: 20170710

REACTIONS (5)
  - Multiple sclerosis [Unknown]
  - Gait disturbance [Unknown]
  - Increased appetite [Unknown]
  - Decreased appetite [Unknown]
  - Weight decreased [Unknown]

NARRATIVE: CASE EVENT DATE: 201711
